FAERS Safety Report 9531272 (Version 1)
Quarter: 2013Q3

REPORT INFORMATION
  Report Type: Spontaneous
  Country: IT (occurrence: IT)
  Receive Date: 20130918
  Receipt Date: 20130918
  Transmission Date: 20140515
  Serious: Yes (Other)
  Sender: FDA-Public Use
  Company Number: IT-TEVA-430590ISR

PATIENT
  Age: 75 Year
  Sex: Female
  Weight: 45 kg

DRUGS (1)
  1. PACLITAXEL [Suspect]
     Indication: OVARIAN CANCER
     Dosage: 250MG, CYCLICAL
     Route: 042
     Dates: start: 20130528, end: 20130528

REACTIONS (3)
  - Rash [Recovered/Resolved]
  - Laryngospasm [Recovered/Resolved]
  - Hyperhidrosis [Recovered/Resolved]
